FAERS Safety Report 9076068 (Version 1)
Quarter: 2013Q1

REPORT INFORMATION
  Report Type: Spontaneous
  Country: US (occurrence: US)
  Receive Date: 20130129
  Receipt Date: 20130129
  Transmission Date: 20140127
  Serious: Yes (Hospitalization)
  Sender: FDA-Public Use
  Company Number: US-GILEAD-2013-0068626

PATIENT
  Age: 71 Year
  Sex: Female

DRUGS (12)
  1. LETAIRIS [Suspect]
     Indication: PULMONARY HYPERTENSION
     Dates: start: 20120711
  2. TOBRAMYCIN [Concomitant]
  3. WARFARIN [Concomitant]
  4. TRILIPIX [Concomitant]
  5. TRICOR                             /00499301/ [Concomitant]
  6. TRIAZOLAM [Concomitant]
  7. SPIRONOLACTONE [Concomitant]
  8. SIMVASTATIN [Concomitant]
  9. DIOVAN [Concomitant]
  10. CITALOPRAM [Concomitant]
  11. CARVEDILOL [Concomitant]
  12. BUMETANIDE [Concomitant]

REACTIONS (1)
  - Pneumonia [Recovered/Resolved]
